FAERS Safety Report 4866093-2 (Version None)
Quarter: 2005Q4

REPORT INFORMATION
  Report Type: 
  Country: None (occurrence: None)
  Receive Date: 20051221
  Receipt Date: 20051208
  Transmission Date: 20060501
  Serious: Yes (Other)
  Sender: FDA-Public Use
  Company Number: 220290

PATIENT
  Age: 50 Year
  Sex: Female

DRUGS (1)
  1. AVASTIN (BEVACIZUMAB) PWDR + SOLVENT, INFUSION SOLN, 100MG [Suspect]
     Dosage: UNK
     Route: 065

REACTIONS (1)
  - UVEITIS [None]
